FAERS Safety Report 6986803-8 (Version None)
Quarter: 2010Q3

REPORT INFORMATION
  Report Type: 
  Country: None (occurrence: None)
  Receive Date: 20100915
  Receipt Date: 20090807
  Transmission Date: 20110219
  Serious: No
  Sender: FDA-Public Use
  Company Number: US-WYE-H10533809

PATIENT
  Sex: Female
  Weight: 90.8 kg

DRUGS (6)
  1. PRISTIQ [Suspect]
     Indication: DEPRESSION
     Route: 048
     Dates: start: 20090731
  2. METFORMIN [Concomitant]
  3. TRICOR [Concomitant]
  4. JANUVIA [Concomitant]
  5. CITALOPRAM HYDROBROMIDE [Concomitant]
  6. CYMBALTA [Concomitant]

REACTIONS (2)
  - FEELING JITTERY [None]
  - NERVOUSNESS [None]
